FAERS Safety Report 6464330-4 (Version None)
Quarter: 2009Q4

REPORT INFORMATION
  Report Type: 
  Country: None (occurrence: None)
  Receive Date: 20091130
  Receipt Date: 20091130
  Transmission Date: 20100525
  Serious: Yes (Hospitalization)
  Sender: FDA-Public Use
  Company Number: None

PATIENT
  Age: 73 Year
  Sex: Male
  Weight: 72.7 kg

DRUGS (1)
  1. FENOGLIDE [Suspect]
     Indication: LOW DENSITY LIPOPROTEIN DECREASED
     Dosage: 3 OR 4 DAYS
     Dates: start: 20091001

REACTIONS (1)
  - GALLBLADDER PAIN [None]
